FAERS Safety Report 8620084-4 (Version None)
Quarter: 2012Q3

REPORT INFORMATION
  Report Type: 
  Country: None (occurrence: None)
  Receive Date: 20120824
  Receipt Date: 20120821
  Transmission Date: 20120928
  Serious: Yes (Hospitalization)
  Sender: FDA-Public Use
  Company Number: US-JNJFOC-20111010218

PATIENT
  Sex: Female
  Weight: 63.3 kg

DRUGS (6)
  1. PREDNISONE TAB [Concomitant]
  2. PROBIOTICS [Concomitant]
  3. MULTIVITAMIN [Concomitant]
  4. INFLIXIMAB, RECOMBINANT [Suspect]
     Route: 042
     Dates: start: 20110525
  5. NORTREL 7/7/7 [Concomitant]
  6. INFLIXIMAB, RECOMBINANT [Suspect]
     Indication: CROHN'S DISEASE
     Route: 042
     Dates: start: 20111024

REACTIONS (1)
  - CROHN'S DISEASE [None]
